FAERS Safety Report 12700540 (Version 7)
Quarter: 2017Q3

REPORT INFORMATION
  Report Type: Spontaneous
  Country: US (occurrence: US)
  Receive Date: 20160830
  Receipt Date: 20170907
  Transmission Date: 20171127
  Serious: No
  Sender: FDA-Public Use
  Company Number: US-ACTELION-A-US2016-141432

PATIENT
  Age: 79 Year
  Sex: Female
  Weight: 54.42 kg

DRUGS (7)
  1. ORENITRAM [Suspect]
     Active Substance: TREPROSTINIL
     Indication: PRODUCT USED FOR UNKNOWN INDICATION
     Dosage: 3 MG, UNK
     Route: 065
     Dates: start: 20170515
  2. OPSUMIT [Suspect]
     Active Substance: MACITENTAN
     Dosage: UNK
     Route: 048
  3. ORENITRAM [Suspect]
     Active Substance: TREPROSTINIL
     Dosage: UNK
     Route: 065
  4. AMLODIPINE [Concomitant]
     Active Substance: AMLODIPINE BESYLATE
  5. OPSUMIT [Suspect]
     Active Substance: MACITENTAN
     Indication: PULMONARY HYPERTENSION
     Dosage: 10 MG, QD
     Route: 048
     Dates: start: 20160503
  6. ADCIRCA [Concomitant]
     Active Substance: TADALAFIL
  7. PREDNISONE. [Concomitant]
     Active Substance: PREDNISONE

REACTIONS (15)
  - Flatulence [Not Recovered/Not Resolved]
  - Skin exfoliation [Unknown]
  - Headache [Recovered/Resolved]
  - Raynaud^s phenomenon [Unknown]
  - Lung infection [Unknown]
  - Dysphonia [Unknown]
  - Haemoglobin decreased [Unknown]
  - Abdominal pain [Not Recovered/Not Resolved]
  - Condition aggravated [Not Recovered/Not Resolved]
  - Anaemia [Unknown]
  - Haematocrit decreased [Unknown]
  - Diarrhoea [Unknown]
  - Abdominal pain upper [Unknown]
  - Weight decreased [Unknown]
  - Nausea [Unknown]
